FAERS Safety Report 23421110 (Version 2)
Quarter: 2024Q1

REPORT INFORMATION
  Report Type: Report from Study
  Country: TR (occurrence: TR)
  Receive Date: 20240119
  Receipt Date: 20240208
  Transmission Date: 20240409
  Serious: Yes (Death, Hospitalization, Other)
  Sender: FDA-Public Use
  Company Number: TR-ABBVIE-5595777

PATIENT
  Age: 68 Year
  Sex: Male
  Weight: 75 kg

DRUGS (6)
  1. CARBIDOPA\LEVODOPA [Suspect]
     Active Substance: CARBIDOPA\LEVODOPA
     Indication: Parkinson^s disease
     Dosage: MORNING DOSE (ML): 8.00 CONTINIOUS DOSE (ML): 3.60 EXTRA DOSE (ML): 1.00
     Route: 050
     Dates: start: 20210331
  2. CARBIDOPA\LEVODOPA [Suspect]
     Active Substance: CARBIDOPA\LEVODOPA
  3. PHOCUSS [Concomitant]
     Indication: Parkinson^s disease
     Dosage: FORM STRENGTH: 20 MILLIGRAM
     Dates: start: 2020
  4. ASPIRIN [Concomitant]
     Active Substance: ASPIRIN
     Indication: Hypertension
     Dosage: FORM STRENGTH: 100 MILLIGRAM
     Dates: start: 2015
  5. CITOL [Concomitant]
     Indication: Depression
     Dosage: FORM STRENGTH: 20 MILLIGRAM
     Dates: start: 2020
  6. BENSERAZIDE HYDROCHLORIDE\LEVODOPA [Concomitant]
     Active Substance: BENSERAZIDE HYDROCHLORIDE\LEVODOPA
     Indication: Parkinson^s disease
     Dosage: FORM STRENGTH: 125 MILLIGRAM?FREQUENCY TEXT: 1X2
     Dates: start: 2018

REACTIONS (2)
  - Sepsis [Fatal]
  - Pneumonia [Not Recovered/Not Resolved]

NARRATIVE: CASE EVENT DATE: 20240202
